FAERS Safety Report 6412589-1 (Version None)
Quarter: 2009Q4

REPORT INFORMATION
  Report Type: 
  Country: None (occurrence: None)
  Receive Date: 20091023
  Receipt Date: 20091013
  Transmission Date: 20100525
  Serious: Yes (Hospitalization, Other)
  Sender: FDA-Public Use
  Company Number: PHEH2009US13429

PATIENT
  Sex: Male

DRUGS (2)
  1. EXJADE [Suspect]
     Indication: HAEMOSIDEROSIS
     Dosage: 2000 MG, QD
     Route: 048
  2. EXJADE [Suspect]
     Indication: SICKLE CELL ANAEMIA

REACTIONS (2)
  - SICKLE CELL ANAEMIA WITH CRISIS [None]
  - UPPER RESPIRATORY TRACT INFECTION [None]
